FAERS Safety Report 22221240 (Version 2)
Quarter: 2023Q2

REPORT INFORMATION
  Report Type: Spontaneous
  Country: AT (occurrence: AT)
  Receive Date: 20230418
  Receipt Date: 20230428
  Transmission Date: 20230721
  Serious: Yes (Hospitalization)
  Sender: FDA-Public Use
  Company Number: AT-BoehringerIngelheim-2023-BI-223879

PATIENT
  Age: 61 Year
  Sex: Female
  Weight: 55 kg

DRUGS (7)
  1. JARDIANCE [Suspect]
     Active Substance: EMPAGLIFLOZIN
     Indication: Angina pectoris
     Dates: start: 20230221, end: 20230316
  2. JARDIANCE [Suspect]
     Active Substance: EMPAGLIFLOZIN
     Indication: Cardiac failure
     Dates: start: 20230418, end: 20230418
  3. SPIRONOLACTONE [Concomitant]
     Active Substance: SPIRONOLACTONE
     Indication: Product used for unknown indication
     Dates: start: 20230221, end: 20230319
  4. XARELTO [Concomitant]
     Active Substance: RIVAROXABAN
     Indication: Atrial fibrillation
  5. XARELTO [Concomitant]
     Active Substance: RIVAROXABAN
     Indication: Injury
  6. FOSTER [Concomitant]
     Active Substance: BECLOMETHASONE\FORMOTEROL
     Indication: Asthma
     Dosage: 1X DAY; IN THE EVENING;
  7. Magnesium Magnosolv [Concomitant]
     Indication: Product used for unknown indication
     Dosage: WHEN REQUIRED

REACTIONS (15)
  - Heart rate decreased [Recovered/Resolved]
  - Mental disorder [Recovered/Resolved]
  - Dehydration [Recovered/Resolved]
  - Dizziness [Recovered/Resolved]
  - Chills [Recovered/Resolved]
  - Blood pressure decreased [Recovered/Resolved]
  - Volume blood decreased [Recovered/Resolved]
  - Body temperature increased [Recovered/Resolved]
  - Angina pectoris [Unknown]
  - Drug ineffective [Unknown]
  - Somnolence [Recovered/Resolved]
  - Gait disturbance [Recovered/Resolved]
  - Sedation [Recovered/Resolved]
  - Slow speech [Recovered/Resolved]
  - Mental impairment [Recovered/Resolved]

NARRATIVE: CASE EVENT DATE: 20230201
